FAERS Safety Report 10176364 (Version 4)
Quarter: 2015Q3

REPORT INFORMATION
  Report Type: Spontaneous
  Country: US (occurrence: US)
  Receive Date: 20140516
  Receipt Date: 20150813
  Transmission Date: 20151125
  Serious: Yes (Hospitalization, Other)
  Sender: FDA-Public Use
  Company Number: US-009507513-1405USA004503

PATIENT
  Sex: Female

DRUGS (5)
  1. FOSAMAX [Suspect]
     Active Substance: ALENDRONATE SODIUM
     Indication: OSTEOPOROSIS
     Dosage: 10 MG, QD
     Route: 048
     Dates: start: 199701, end: 20001019
  2. ALENDRONATE SODIUM. [Suspect]
     Active Substance: ALENDRONATE SODIUM
     Indication: OSTEOPOROSIS
     Dosage: 70 MG, QW
     Route: 048
     Dates: start: 201107, end: 201201
  3. ALENDRONATE SODIUM. [Suspect]
     Active Substance: ALENDRONATE SODIUM
     Indication: OSTEOPENIA
  4. FOSAMAX [Suspect]
     Active Substance: ALENDRONATE SODIUM
     Indication: OSTEOPENIA
     Dosage: 70 MG, QW
     Route: 048
     Dates: start: 20001020, end: 20111217
  5. VITAMINS (UNSPECIFIED) [Concomitant]
     Active Substance: VITAMINS
     Dosage: 1 DAILY
     Route: 048
     Dates: start: 1990

REACTIONS (9)
  - Fall [Unknown]
  - Surgery [Unknown]
  - Deep vein thrombosis [Unknown]
  - Foot fracture [Unknown]
  - Drug ineffective [Unknown]
  - Foot fracture [Unknown]
  - Hypercholesterolaemia [Unknown]
  - Deep vein thrombosis [Unknown]
  - Femur fracture [Unknown]

NARRATIVE: CASE EVENT DATE: 1999
